APPROVED DRUG PRODUCT: METRONIDAZOLE
Active Ingredient: METRONIDAZOLE
Strength: 250MG
Dosage Form/Route: TABLET;ORAL
Application: N018620 | Product #001
Applicant: FOSUN PHARMA USA INC
Approved: Mar 4, 1982 | RLD: No | RS: No | Type: DISCN